FAERS Safety Report 4319827-X (Version None)
Quarter: 2004Q1

REPORT INFORMATION
  Report Type: 
  Country: None (occurrence: None)
  Receive Date: 20040316
  Receipt Date: 20040227
  Transmission Date: 20041129
  Serious: Yes (Disabling)
  Sender: FDA-Public Use
  Company Number: DSA_24059_2004

PATIENT
  Age: 44 Year
  Sex: Female

DRUGS (7)
  1. DILTIAZEM [Suspect]
     Dosage: 180 MG Q DAY PO
     Route: 048
     Dates: start: 20030501
  2. LEVOTHYROXINE SODIUM [Suspect]
     Indication: HYPOTHYROIDISM
     Dosage: 75 MCG Q DAY PO
     Route: 048
     Dates: start: 20030501
  3. VALIUM [Suspect]
     Indication: ANXIETY
     Dosage: 10 MG Q DAY PO
     Route: 048
     Dates: start: 20030501
  4. PROZAC [Suspect]
     Indication: DEPRESSION
  5. DRIPTANE [Suspect]
     Indication: URINARY INCONTINENCE
     Dosage: 5 MG Q DAY PO
     Route: 048
     Dates: start: 20030501
  6. RELPAX [Suspect]
     Indication: MIGRAINE
     Dosage: 40 MG Q DAY PO
     Route: 048
     Dates: start: 20031107, end: 20031107
  7. IMIGRANE [Concomitant]

REACTIONS (2)
  - AMAUROSIS [None]
  - AMNESIA [None]
